FAERS Safety Report 7995524-4 (Version None)
Quarter: 2011Q4

REPORT INFORMATION
  Report Type: 
  Country: None (occurrence: None)
  Receive Date: 20111220
  Receipt Date: 20111213
  Transmission Date: 20120403
  Serious: No
  Sender: FDA-Public Use
  Company Number: US-PFIZER INC-2011304391

PATIENT
  Sex: Female
  Weight: 72.562 kg

DRUGS (14)
  1. PREDNISONE [Concomitant]
     Dosage: 1 MG, UNK
     Route: 048
  2. LEXAPRO [Concomitant]
     Dosage: 5 MG, UNK
     Route: 048
  3. SUTENT [Suspect]
     Dosage: 37.5 MG (25 MG CAPSULE + 12.5 MG CAPSULE), 1X/DAY
     Route: 048
     Dates: start: 20101210
  4. HUMULIN R [Concomitant]
     Dosage: UNK
     Route: 058
  5. AMLODIPINE [Concomitant]
     Dosage: 2.5 MG, UNK
     Route: 048
  6. METOPROLOL [Concomitant]
     Dosage: 25 MG, UNK
     Route: 048
  7. HYDROMORPHONE [Concomitant]
     Dosage: 2 MG, UNK
     Route: 048
  8. VALSARTAN [Concomitant]
     Dosage: 40 MG, UNK
     Route: 048
  9. ACTOS [Concomitant]
     Dosage: 15 MG, UNK
     Route: 048
  10. PLAVIX [Concomitant]
     Dosage: 75 MG, UNK
     Route: 048
  11. FENTANYL [Concomitant]
     Dosage: 25 UG/ HR TD
     Route: 062
  12. LIPITOR [Concomitant]
     Dosage: 10 MG, UNK
     Route: 048
  13. ACETYLSALICYLIC ACID [Concomitant]
     Dosage: 81 MG, UNK
     Route: 048
  14. ZETIA [Concomitant]
     Dosage: 10 MG, UNK
     Route: 048

REACTIONS (2)
  - NAUSEA [None]
  - DIARRHOEA [None]
